FAERS Safety Report 10973387 (Version 1)
Quarter: 2015Q2

REPORT INFORMATION
  Report Type: Spontaneous
  Country: US (occurrence: US)
  Receive Date: 20150401
  Receipt Date: 20150401
  Transmission Date: 20150821
  Serious: Yes (Other)
  Sender: FDA-Public Use
  Company Number: US-ASTRAZENECA-2015SE28501

PATIENT

DRUGS (5)
  1. LIALDA [Concomitant]
     Active Substance: MESALAMINE
  2. BUDESONIDE. [Suspect]
     Active Substance: BUDESONIDE
     Route: 048
  3. REMICADE [Concomitant]
     Active Substance: INFLIXIMAB
  4. OMEPRAZOLE. [Suspect]
     Active Substance: OMEPRAZOLE
     Route: 048
  5. SUPPLEMENTS [Concomitant]
     Active Substance: UNSPECIFIED INGREDIENT

REACTIONS (2)
  - Weight decreased [Unknown]
  - Crohn^s disease [Unknown]
